FAERS Safety Report 14767641 (Version 1)
Quarter: 2018Q2

REPORT INFORMATION
  Report Type: Spontaneous
  Country: US (occurrence: US)
  Receive Date: 20180410
  Receipt Date: 20180410
  Transmission Date: 20180711
  Serious: Yes (Hospitalization)
  Sender: FDA-Public Use
  Company Number: None

PATIENT
  Age: 42 Year
  Sex: Female
  Weight: 76.66 kg

DRUGS (4)
  1. MULTIVITAMINS FOR WOMEN [Concomitant]
  2. VENLAFAXINE ER 37,5MG CAP GENERIC FOR EFFEXOR XR 37,5MG [Suspect]
     Active Substance: VENLAFAXINE HYDROCHLORIDE
     Indication: PANIC ATTACK
     Dosage: 1 CAPSULE 1X DAY IN THE MORNING WITH FOOD?
     Dates: start: 20180330, end: 20180401
  3. VENLAFAXINE ER 37,5MG CAP GENERIC FOR EFFEXOR XR 37,5MG [Suspect]
     Active Substance: VENLAFAXINE HYDROCHLORIDE
     Indication: DEPRESSION
     Dosage: 1 CAPSULE 1X DAY IN THE MORNING WITH FOOD?
     Dates: start: 20180330, end: 20180401
  4. VEGETARIAN WOMEN^S MULTI [Concomitant]

REACTIONS (7)
  - Dyspnoea [None]
  - Rash [None]
  - Nausea [None]
  - Headache [None]
  - Oropharyngeal pain [None]
  - Pyrexia [None]
  - Cough [None]

NARRATIVE: CASE EVENT DATE: 20180401
